FAERS Safety Report 4438978-2 (Version None)
Quarter: 2004Q3

REPORT INFORMATION
  Report Type: 
  Country: None (occurrence: None)
  Receive Date: 20040830
  Receipt Date: 20040819
  Transmission Date: 20050211
  Serious: Yes (Hospitalization)
  Sender: FDA-Public Use
  Company Number: STA-AE-04-MTX-374

PATIENT
  Age: 68 Year
  Sex: Male

DRUGS (4)
  1. RHEUMATREX [Suspect]
     Indication: RHEUMATOID ARTHRITIS
     Dosage: 4 MG 1X PER 1 WK, ORAL
     Route: 048
     Dates: start: 20040526
  2. VOLTAREN [Concomitant]
  3. PREDNISOLONE [Concomitant]
  4. BASEN (VOGLIBOSE) [Concomitant]

REACTIONS (1)
  - INTERSTITIAL LUNG DISEASE [None]
